FAERS Safety Report 23961597 (Version 3)
Quarter: 2024Q3

REPORT INFORMATION
  Report Type: Report from Study
  Country: CN (occurrence: CN)
  Receive Date: 20240611
  Receipt Date: 20240729
  Transmission Date: 20241017
  Serious: Yes (Hospitalization, Other)
  Sender: PFIZER
  Company Number: CN-TAKEDA-2023TUS099574

PATIENT
  Age: 60 Year
  Sex: Male
  Weight: 72 kg

DRUGS (20)
  1. BRENTUXIMAB VEDOTIN [Suspect]
     Active Substance: BRENTUXIMAB VEDOTIN
     Indication: Non-Hodgkin^s lymphoma
     Dosage: 100 MILLIGRAM, Q3WEEKS
     Route: 041
     Dates: start: 20230922
  2. METHYLPREDNISOLONE [Suspect]
     Active Substance: METHYLPREDNISOLONE
     Indication: Non-Hodgkin^s lymphoma
     Dosage: 80 MG, 1X/DAY
     Route: 042
     Dates: start: 20230922, end: 20230926
  3. METHYLPREDNISOLONE [Suspect]
     Active Substance: METHYLPREDNISOLONE
     Dosage: 40 MG, 1X/DAY
     Route: 042
     Dates: start: 20231016
  4. CYCLOPHOSPHAMIDE [Suspect]
     Active Substance: CYCLOPHOSPHAMIDE
     Indication: Non-Hodgkin^s lymphoma
     Dosage: 1 GRAM, QD
     Route: 042
     Dates: start: 20230922, end: 20230923
  5. CYCLOPHOSPHAMIDE [Suspect]
     Active Substance: CYCLOPHOSPHAMIDE
     Dosage: 1 GRAM, ONCE A DAY
     Route: 042
     Dates: start: 20231013
  6. ETOPOSIDE [Suspect]
     Active Substance: ETOPOSIDE
     Indication: Non-Hodgkin^s lymphoma
     Dosage: 0.1 GRAM, 3/WEEK
     Route: 042
     Dates: start: 20230922, end: 20230926
  7. ETOPOSIDE [Suspect]
     Active Substance: ETOPOSIDE
     Dosage: 0.1 GRAM, 3/WEEK
     Route: 042
     Dates: start: 20231013
  8. DOXORUBICIN HYDROCHLORIDE [Suspect]
     Active Substance: DOXORUBICIN HYDROCHLORIDE
     Indication: Non-Hodgkin^s lymphoma
     Dosage: 10 MILLILITER, Q3WEEKS
     Route: 042
     Dates: start: 20230922, end: 20230924
  9. DOXORUBICIN HYDROCHLORIDE [Suspect]
     Active Substance: DOXORUBICIN HYDROCHLORIDE
     Dosage: 10 MILLILITER, Q3WEEKS
     Route: 042
     Dates: start: 20231013
  10. MAGNESIUM ISOGLYCYRRHIZINATE [Concomitant]
     Active Substance: MAGNESIUM ISOGLYCYRRHIZINATE
     Indication: Hepatic function abnormal
     Dosage: 200 MILLIGRAM, QD
     Route: 042
     Dates: start: 20230917, end: 20230928
  11. MAGNESIUM ISOGLYCYRRHIZINATE [Concomitant]
     Active Substance: MAGNESIUM ISOGLYCYRRHIZINATE
     Indication: Prophylaxis
  12. GLUTATHIONE [Concomitant]
     Active Substance: GLUTATHIONE
     Indication: Hepatic function abnormal
     Dosage: 2.4 GRAM, QD
     Route: 042
     Dates: start: 20230917, end: 20230925
  13. ILAPRAZOLE [Concomitant]
     Active Substance: ILAPRAZOLE
     Indication: Gastrointestinal disorder prophylaxis
     Dosage: 5 MILLIGRAM, BID (ENTERIC COATED TABLET)
     Route: 048
     Dates: start: 20230918, end: 20230924
  14. OMEPRAZOLE [Concomitant]
     Active Substance: OMEPRAZOLE
     Indication: Prophylaxis
     Dosage: 40 MILLIGRAM, QD
     Route: 042
     Dates: start: 20230918, end: 20230926
  15. HUMAN IMMUNOGLOBULIN G [Concomitant]
     Active Substance: HUMAN IMMUNOGLOBULIN G
     Indication: Immune enhancement therapy
     Dosage: 2.5 GRAM, QD
     Route: 042
     Dates: start: 20230921, end: 20230922
  16. APREPITANT [Concomitant]
     Active Substance: APREPITANT
     Indication: Antiemetic supportive care
     Dosage: UNK UNK, QD
     Route: 048
     Dates: start: 20230922, end: 20230926
  17. ONDANSETRON [Concomitant]
     Active Substance: ONDANSETRON
     Indication: Antiemetic supportive care
     Dosage: 8 MILLIGRAM, BID
     Route: 048
     Dates: start: 20230922, end: 20230926
  18. DIETARY SUPPLEMENT\HERBALS\MILK THISTLE [Concomitant]
     Active Substance: MILK THISTLE
     Indication: Prophylaxis
     Dosage: 105 MILLIGRAM, TID
     Route: 048
     Dates: start: 20230925, end: 20230928
  19. PIPERACILLIN AND TAZOBACTAM [Concomitant]
     Active Substance: PIPERACILLIN SODIUM\TAZOBACTAM SODIUM
     Indication: Pneumonia
     Dosage: 4.5 GRAM, Q12H
     Route: 042
     Dates: start: 20230926, end: 20230927
  20. URSODIOL [Concomitant]
     Active Substance: URSODIOL
     Indication: Prophylaxis
     Dosage: 0.25 GRAM, TID
     Route: 048
     Dates: start: 20231012, end: 20231017

REACTIONS (3)
  - Pyrexia [Recovered/Resolved]
  - Myelosuppression [Not Recovered/Not Resolved]
  - Off label use [Unknown]

NARRATIVE: CASE EVENT DATE: 20230922
